FAERS Safety Report 16078889 (Version 1)
Quarter: 2019Q1

REPORT INFORMATION
  Report Type: Spontaneous
  Country: HR (occurrence: HR)
  Receive Date: 20190315
  Receipt Date: 20190315
  Transmission Date: 20190418
  Serious: Yes (Other)
  Sender: FDA-Public Use
  Company Number: HR-BAUSCH-BL-2019-007817

PATIENT
  Sex: Female
  Weight: 78 kg

DRUGS (4)
  1. DASSELTA [Suspect]
     Active Substance: DESLORATADINE
     Indication: DRUG HYPERSENSITIVITY
     Route: 048
     Dates: start: 201902
  2. DEXAMETHASONE. [Suspect]
     Active Substance: DEXAMETHASONE
     Indication: DRUG HYPERSENSITIVITY
     Route: 065
  3. KLAVOBEL BID [Suspect]
     Active Substance: AMOXICILLIN\CLAVULANATE POTASSIUM
     Indication: PRODUCT USED FOR UNKNOWN INDICATION
     Dosage: 875 MG AMOXICILLIN PLUS125 MG CLAVULANATE POTASSIUM
     Route: 048
     Dates: start: 20190208, end: 20190214
  4. BELODERM [Suspect]
     Active Substance: BETAMETHASONE DIPROPIONATE
     Indication: DRUG HYPERSENSITIVITY
     Route: 065

REACTIONS (3)
  - Swelling face [Recovering/Resolving]
  - Rash pruritic [Recovering/Resolving]
  - Condition aggravated [Recovering/Resolving]

NARRATIVE: CASE EVENT DATE: 201902
